FAERS Safety Report 19153869 (Version 1)
Quarter: 2021Q2

REPORT INFORMATION
  Report Type: Spontaneous
  Country: US (occurrence: US)
  Receive Date: 20210419
  Receipt Date: 20210419
  Transmission Date: 20210717
  Serious: No
  Sender: FDA-Public Use
  Company Number: US-PFIZER INC-2021046353

PATIENT
  Age: 31 Year
  Sex: Female

DRUGS (2)
  1. TAXOTERE [Suspect]
     Active Substance: DOCETAXEL
     Indication: BREAST CANCER FEMALE
     Dosage: 2 (UNSPECIFIED UNITS), CYCLIC (03 CYCLES, EVERY TWO WEEKS)
     Dates: start: 200905, end: 200908
  2. DOCETAXEL. [Suspect]
     Active Substance: DOCETAXEL
     Indication: BREAST CANCER FEMALE
     Dosage: 2 (UNSPECIFIED UNITS), CYCLIC (03 CYCLES, EVERY TWO WEEKS)
     Dates: start: 200905, end: 200908

REACTIONS (2)
  - Madarosis [Not Recovered/Not Resolved]
  - Alopecia [Not Recovered/Not Resolved]
